FAERS Safety Report 14100720 (Version 1)
Quarter: 2017Q4

REPORT INFORMATION
  Report Type: Report from Study
  Country: US (occurrence: US)
  Receive Date: 20171018
  Receipt Date: 20171018
  Transmission Date: 20180321
  Serious: No
  Sender: FDA-Public Use
  Company Number: US-AMGEN-USASL2017156001

PATIENT
  Age: 67 Year
  Sex: Male

DRUGS (1)
  1. ENBREL [Suspect]
     Active Substance: ETANERCEPT
     Indication: RHEUMATOID ARTHRITIS
     Dosage: 50 MG, QWK
     Route: 065
     Dates: start: 201709

REACTIONS (6)
  - Contusion [Unknown]
  - Eye pain [Unknown]
  - Therapy non-responder [Unknown]
  - Ocular hyperaemia [Unknown]
  - Vision blurred [Unknown]
  - Rash papular [Unknown]

NARRATIVE: CASE EVENT DATE: 2017
